FAERS Safety Report 19438807 (Version 1)
Quarter: 2021Q2

REPORT INFORMATION
  Report Type: Spontaneous
  Country: SA (occurrence: SA)
  Receive Date: 20210618
  Receipt Date: 20210618
  Transmission Date: 20210717
  Serious: Yes (Death)
  Sender: FDA-Public Use
  Company Number: SA-ONY, INC.-2112873

PATIENT
  Age: 1 Day
  Sex: Male

DRUGS (13)
  1. INFASURF [Suspect]
     Active Substance: CALFACTANT
     Indication: NEONATAL RESPIRATORY DISTRESS SYNDROME
     Route: 007
     Dates: start: 20210519, end: 20210519
  2. AMPICILLIN SODIUM. [Concomitant]
     Active Substance: AMPICILLIN SODIUM
     Dates: start: 20210519, end: 20210519
  3. VANCOMYCIN HYDROCHLORIDE. [Concomitant]
     Active Substance: VANCOMYCIN HYDROCHLORIDE
     Dates: end: 20210519
  4. MIDAZOLAM HYDROCHLORIDE. [Concomitant]
     Active Substance: MIDAZOLAM HYDROCHLORIDE
     Dates: start: 20210519, end: 20210519
  5. SALINE [Concomitant]
     Active Substance: SODIUM CHLORIDE
     Dates: start: 20210519, end: 20210519
  6. WATER. [Concomitant]
     Active Substance: WATER
     Dates: start: 20210519, end: 20210519
  7. CALCIUM GLUCONATE. [Concomitant]
     Active Substance: CALCIUM GLUCONATE
     Dates: start: 20210519, end: 20210519
  8. FLUCONAZOLE. [Concomitant]
     Active Substance: FLUCONAZOLE
     Dates: start: 20210519, end: 20210519
  9. CEFOTAXIME [Concomitant]
     Active Substance: CEFOTAXIME SODIUM
     Dates: start: 20210519, end: 20210519
  10. MEROPENEM. [Concomitant]
     Active Substance: MEROPENEM
     Dates: start: 20210519, end: 20210519
  11. PHYTOMENADIONE [Concomitant]
     Active Substance: PHYTONADIONE
     Dates: start: 20210519, end: 20210519
  12. CAFFEINE CITRATE. [Concomitant]
     Active Substance: CAFFEINE CITRATE
     Dates: start: 20210519, end: 20210519
  13. DEXTROSE. [Concomitant]
     Active Substance: DEXTROSE
     Dates: start: 20210519, end: 20210519

REACTIONS (2)
  - Endotracheal intubation complication [Unknown]
  - Death [Fatal]

NARRATIVE: CASE EVENT DATE: 20210519
